FAERS Safety Report 8972816 (Version 1)
Quarter: 2012Q4

REPORT INFORMATION
  Report Type: 
  Country: US (occurrence: US)
  Receive Date: 20121219
  Receipt Date: 20121219
  Transmission Date: 20130627
  Serious: Yes (Hospitalization)
  Sender: FDA-Public Use
  Company Number: US-BAYER-2012-131874

PATIENT
  Age: 26 Year
  Sex: Female
  Weight: 70.3 kg

DRUGS (6)
  1. YASMIN [Suspect]
  2. SYNTHROID [Concomitant]
     Indication: HYPOTHYROIDISM
     Dosage: 137 ?g, UNK
     Dates: start: 20060221
  3. CARBIDOPA W/LEVODOPA [Concomitant]
     Dosage: 25-100
     Dates: start: 20060414
  4. NYQUIL [Concomitant]
  5. LUPRON [Concomitant]
  6. ZOVIRAX [ACICLOVIR] [Concomitant]

REACTIONS (1)
  - Pulmonary embolism [Recovering/Resolving]
